FAERS Safety Report 22058865 (Version 2)
Quarter: 2023Q2

REPORT INFORMATION
  Report Type: Report from Study
  Country: EG (occurrence: EG)
  Receive Date: 20230303
  Receipt Date: 20230531
  Transmission Date: 20230722
  Serious: Yes (Other)
  Sender: FDA-Public Use
  Company Number: EG-002147023-NVSC2023EG042723

PATIENT
  Sex: Female

DRUGS (5)
  1. OMNITROPE [Suspect]
     Active Substance: SOMATROPIN
     Indication: Short stature
     Dosage: 0.9 MG, QD
     Route: 058
     Dates: start: 20220224
  2. OMNITROPE [Suspect]
     Active Substance: SOMATROPIN
     Dosage: 1.2 MG, QD
     Route: 058
  3. HYDROFERRIN [Concomitant]
     Indication: Supplementation therapy
     Dosage: 1 DRP, QD
     Route: 048
     Dates: start: 20220101
  4. VIDROP [Concomitant]
     Indication: Supplementation therapy
     Dosage: 1 DRP, QD
     Route: 048
     Dates: start: 20220101
  5. ELBAVIT [Concomitant]
     Indication: Supplementation therapy
     Dosage: UNK, QD ,5 CM/DAY
     Route: 048
     Dates: start: 20220101

REACTIONS (6)
  - Growth retardation [Not Recovered/Not Resolved]
  - Poor quality device used [Not Recovered/Not Resolved]
  - Wrong technique in product usage process [Unknown]
  - Needle issue [Not Recovered/Not Resolved]
  - Product use in unapproved indication [Unknown]
  - Drug ineffective [Not Recovered/Not Resolved]

NARRATIVE: CASE EVENT DATE: 20220101
